FAERS Safety Report 14009452 (Version 2)
Quarter: 2017Q4

REPORT INFORMATION
  Report Type: Spontaneous
  Country: US (occurrence: US)
  Receive Date: 20170925
  Receipt Date: 20171006
  Transmission Date: 20180321
  Serious: No
  Sender: FDA-Public Use
  Company Number: US-BAYER-2017-183039

PATIENT
  Sex: Female
  Weight: 48 kg

DRUGS (1)
  1. CLARITIN [Suspect]
     Active Substance: LORATADINE
     Indication: NASAL CONGESTION
     Dosage: 1 DF, QD
     Route: 048

REACTIONS (4)
  - Inappropriate prescribing [Unknown]
  - Drug ineffective for unapproved indication [Unknown]
  - Product use in unapproved indication [None]
  - Drug administration error [None]
